FAERS Safety Report 4518813-4 (Version None)
Quarter: 2004Q4

REPORT INFORMATION
  Report Type: 
  Country: None (occurrence: None)
  Receive Date: 20041104
  Receipt Date: 20040806
  Transmission Date: 20050328
  Serious: Yes (Other)
  Sender: FDA-Public Use
  Company Number: PHEH2004US08589

PATIENT
  Age: 62 Year
  Sex: Female

DRUGS (1)
  1. ESTRADERM [Suspect]
     Dosage: TRANSDERMAL
     Route: 062

REACTIONS (3)
  - BREAST CANCER [None]
  - LYMPHADENECTOMY [None]
  - MALIGNANT BREAST LUMP REMOVAL [None]
